FAERS Safety Report 4974303-6 (Version None)
Quarter: 2006Q2

REPORT INFORMATION
  Report Type: 
  Country: None (occurrence: None)
  Receive Date: 20060417
  Receipt Date: 20050729
  Transmission Date: 20061013
  Serious: Yes (Hospitalization, Disabling)
  Sender: FDA-Public Use
  Company Number: US-MERCK-0508USA00410

PATIENT
  Age: 51 Year
  Sex: Female
  Weight: 109 kg

DRUGS (4)
  1. ALEVE [Concomitant]
     Indication: HEADACHE
     Route: 048
     Dates: start: 20010922
  2. VIOXX [Suspect]
     Indication: OSTEOARTHRITIS
     Route: 048
     Dates: start: 20001001, end: 20040901
  3. VIOXX [Suspect]
     Indication: ARTHRITIS
     Route: 048
     Dates: start: 20001001, end: 20040901
  4. GLUCOSAMINE SULFATE [Concomitant]
     Indication: ARTHRITIS
     Route: 048
     Dates: start: 19990101

REACTIONS (18)
  - BLOOD GLUCOSE INCREASED [None]
  - CEREBELLAR INFARCTION [None]
  - CEREBROVASCULAR ACCIDENT [None]
  - CHOREA [None]
  - DEPRESSION [None]
  - GASTROOESOPHAGEAL REFLUX DISEASE [None]
  - HEADACHE [None]
  - HYDRONEPHROSIS [None]
  - HYPERTENSION [None]
  - JOINT INJURY [None]
  - MENISCUS LESION [None]
  - NAUSEA [None]
  - NEPHROLITHIASIS [None]
  - OBESITY [None]
  - PHOTOPHOBIA [None]
  - RHINITIS [None]
  - VERTIGO [None]
  - VOMITING [None]
